FAERS Safety Report 9043018 (Version 1)
Quarter: 2013Q1

REPORT INFORMATION
  Report Type: Report from Study
  Country: US (occurrence: US)
  Receive Date: 20130129
  Receipt Date: 20130129
  Transmission Date: 20140127
  Serious: No
  Sender: FDA-Public Use
  Company Number: US-ABBOTT-12P-163-0910610-00

PATIENT
  Age: 53 Year
  Sex: Female

DRUGS (6)
  1. HUMIRA 40 MG/0.8 ML PEN [Suspect]
     Indication: RHEUMATOID ARTHRITIS
     Dates: start: 20120220, end: 20120220
  2. METHOTREXATE [Concomitant]
     Indication: PRODUCT USED FOR UNKNOWN INDICATION
     Dosage: 10 TABS EVERY FRIDAY
  3. FOLIC ACID [Concomitant]
     Indication: PRODUCT USED FOR UNKNOWN INDICATION
     Dosage: DAILY
  4. LYRICA [Concomitant]
     Indication: PAIN IN EXTREMITY
     Dosage: 1 TAB IN THE AM AND 2 TABS IN THE PM
  5. LYRICA [Concomitant]
     Indication: PAIN IN EXTREMITY
  6. GOBS OF VITAMINS [Concomitant]
     Indication: PRODUCT USED FOR UNKNOWN INDICATION

REACTIONS (10)
  - Nasopharyngitis [Not Recovered/Not Resolved]
  - Sinus congestion [Not Recovered/Not Resolved]
  - Fatigue [Not Recovered/Not Resolved]
  - Wound [Not Recovered/Not Resolved]
  - Impaired healing [Not Recovered/Not Resolved]
  - Impaired healing [Not Recovered/Not Resolved]
  - Wound [Not Recovered/Not Resolved]
  - Wound secretion [None]
  - Wound secretion [None]
  - Impetigo [Recovering/Resolving]
